FAERS Safety Report 10702804 (Version 2)
Quarter: 2015Q1

REPORT INFORMATION
  Report Type: Spontaneous
  Country: US (occurrence: US)
  Receive Date: 20150110
  Receipt Date: 20150110
  Transmission Date: 20150721
  Serious: No
  Sender: FDA-Public Use
  Company Number: US-CELGENEUS-USA-2014101052

PATIENT
  Sex: Female

DRUGS (1)
  1. OTEZLA [Suspect]
     Active Substance: APREMILAST
     Indication: PSORIASIS
     Dosage: 60 MILLIGRAM
     Route: 048
     Dates: start: 20141005

REACTIONS (6)
  - Mobility decreased [Unknown]
  - Pain in extremity [Unknown]
  - Drug dose omission [Unknown]
  - Drug ineffective [Unknown]
  - Joint stiffness [Unknown]
  - Nausea [Unknown]
